FAERS Safety Report 17671663 (Version 1)
Quarter: 2020Q2

REPORT INFORMATION
  Report Type: Spontaneous
  Country: DE (occurrence: DE)
  Receive Date: 20200415
  Receipt Date: 20200415
  Transmission Date: 20200713
  Serious: Yes (Hospitalization)
  Sender: FDA-Public Use
  Company Number: DE-TEVA-2020-DE-1222567

PATIENT
  Age: 51 Year
  Sex: Male

DRUGS (5)
  1. PONATINIB [Concomitant]
     Active Substance: PONATINIB
     Indication: CHRONIC MYELOID LEUKAEMIA
  2. FENOFIBRATE. [Suspect]
     Active Substance: FENOFIBRATE
     Indication: HYPERTRIGLYCERIDAEMIA
     Route: 065
  3. DEXAMETHASONE. [Suspect]
     Active Substance: DEXAMETHASONE
     Indication: B PRECURSOR TYPE ACUTE LEUKAEMIA
     Dosage: HIGH-DOSE
     Route: 065
  4. PONATINIB [Concomitant]
     Active Substance: PONATINIB
     Indication: B PRECURSOR TYPE ACUTE LEUKAEMIA
     Route: 065
  5. PEGYLATED ASPARAGINASE [Interacting]
     Active Substance: PEGASPARGASE
     Indication: B PRECURSOR TYPE ACUTE LEUKAEMIA
     Dosage: 1000 IU/M2 FOR A TOTAL OF 2060 IU
     Route: 065

REACTIONS (3)
  - Hepatotoxicity [Recovered/Resolved]
  - Drug interaction [Recovered/Resolved]
  - Hypertriglyceridaemia [Recovered/Resolved]
